FAERS Safety Report 5516246-5 (Version None)
Quarter: 2007Q4

REPORT INFORMATION
  Report Type: 
  Country: None (occurrence: None)
  Receive Date: 20071114
  Receipt Date: 20070112
  Transmission Date: 20080405
  Serious: No
  Sender: FDA-Public Use
  Company Number: A0635307A

PATIENT
  Sex: Female

DRUGS (1)
  1. COMMIT [Suspect]
     Dosage: 4MG UNKNOWN
     Route: 002
     Dates: start: 20070110, end: 20070110

REACTIONS (1)
  - GLOSSODYNIA [None]
